FAERS Safety Report 8332031-3 (Version None)
Quarter: 2012Q2

REPORT INFORMATION
  Report Type: 
  Country: None (occurrence: None)
  Receive Date: 20120502
  Receipt Date: 20120430
  Transmission Date: 20120825
  Serious: Yes (Hospitalization, Other)
  Sender: FDA-Public Use
  Company Number: US-AMGEN-USASP2011014490

PATIENT
  Age: 60 Year
  Sex: Male

DRUGS (2)
  1. ENBREL [Suspect]
     Indication: PSORIASIS
     Dosage: 50 MG, QWK
     Route: 058
     Dates: start: 20041105, end: 20110315
  2. ENBREL [Suspect]
     Dosage: 50 MG, QWK
     Dates: end: 20110307

REACTIONS (5)
  - PARAESTHESIA [None]
  - LUNG INFECTION [None]
  - CONVULSION [None]
  - LIMB INJURY [None]
  - HYPOAESTHESIA [None]
